FAERS Safety Report 16819391 (Version 3)
Quarter: 2020Q3

REPORT INFORMATION
  Report Type: Spontaneous
  Country: CA (occurrence: CA)
  Receive Date: 20190917
  Receipt Date: 20200612
  Transmission Date: 20201104
  Serious: Yes (Other)
  Sender: FDA-Public Use
  Company Number: CA-PFIZER INC-2019396135

PATIENT
  Age: 21 Year
  Sex: Male

DRUGS (9)
  1. MIDAZOLAM HYDROCHLORIDE. [Suspect]
     Active Substance: MIDAZOLAM HYDROCHLORIDE
     Indication: SEIZURE
     Dosage: UNK
  2. VIMPAT [Suspect]
     Active Substance: LACOSAMIDE
     Indication: SEIZURE
     Dosage: UNK
  3. PHENYTOIN. [Suspect]
     Active Substance: PHENYTOIN
     Indication: SEIZURE
     Dosage: UNK
  4. KEPPRA [Suspect]
     Active Substance: LEVETIRACETAM
     Indication: SEIZURE
     Dosage: UNK
  5. PHENOBARBITAL SODIUM. [Suspect]
     Active Substance: PHENOBARBITAL SODIUM
     Indication: SEIZURE
     Dosage: 100 MG, 2X/DAY
  6. PROPOFOL. [Suspect]
     Active Substance: PROPOFOL
     Indication: SEIZURE
     Dosage: UNK
  7. FORANE [Suspect]
     Active Substance: ISOFLURANE
     Indication: SEIZURE
     Dosage: UNK
  8. METHYLPREDNISOLONE SODIUM SUCCINATE. [Suspect]
     Active Substance: METHYLPREDNISOLONE SODIUM SUCCINATE
     Dosage: UNK
     Route: 042
  9. SODIUM VALPROATE [Suspect]
     Active Substance: VALPROATE SODIUM
     Indication: SEIZURE
     Dosage: UNK

REACTIONS (13)
  - Pyrexia [Unknown]
  - Blood lactic acid increased [Unknown]
  - Systemic inflammatory response syndrome [Unknown]
  - Hypotension [Unknown]
  - Ileus [Unknown]
  - Drug ineffective [Unknown]
  - Heart rate increased [Unknown]
  - Necrosis ischaemic [Unknown]
  - Abdominal distension [Unknown]
  - Leukocytosis [Unknown]
  - Superinfection [Unknown]
  - Intestinal ischaemia [Unknown]
  - Mucosal ulceration [Unknown]
